FAERS Safety Report 10052903 (Version 1)
Quarter: 2014Q2

REPORT INFORMATION
  Report Type: Spontaneous
  Country: US (occurrence: US)
  Receive Date: 20140402
  Receipt Date: 20140402
  Transmission Date: 20141212
  Serious: Yes (Other)
  Sender: FDA-Public Use
  Company Number: US-B.I. PHARMACEUTICALS,INC./RIDGEFIELD-2014-BI-13649BP

PATIENT
  Sex: Female

DRUGS (3)
  1. DULCOLAX SUPPOSITORY [Suspect]
     Indication: CONSTIPATION
     Route: 054
     Dates: start: 2012
  2. FENTANYL TRANSDERMAL PATCH [Concomitant]
     Indication: BONE CANCER
     Dosage: TRANSDERMAL PATCH
     Route: 050
  3. HYDROCODONE [Concomitant]
     Indication: BONE CANCER
     Dosage: 6 ANZ
     Route: 048

REACTIONS (2)
  - Breast cancer [Not Recovered/Not Resolved]
  - Bone cancer [Not Recovered/Not Resolved]
